FAERS Safety Report 8612044 (Version 2)
Quarter: 2012Q4

REPORT INFORMATION
  Report Type: Spontaneous
  Country: US (occurrence: None)
  Receive Date: 20120530
  Receipt Date: 20120920
  Transmission Date: 20130627
  Serious: Yes (Other)
  Sender: FDA-Public Use
  Company Number: JPI-P-020846

PATIENT
  Age: 61 Year
  Sex: Female
  Weight: 67.59 kg

DRUGS (4)
  1. XYREM [Suspect]
     Indication: CATAPLEXY
     Dosage: ,ORAL, 7.5 GM (3.75 GM,2 IN 1 D),ORAL
     Route: 048
     Dates: start: 20111221
  2. XYREM [Suspect]
     Indication: CATAPLEXY
     Dosage: (3.75 GM,2 IN 1 D)
     Route: 048
  3. LAMICTAL [Concomitant]
  4. LEXAPRO [Concomitant]

REACTIONS (6)
  - Urinary incontinence [None]
  - Enuresis [None]
  - Bladder cancer [None]
  - Dysuria [None]
  - Pollakiuria [None]
  - Procedural pain [None]
